FAERS Safety Report 10201412 (Version 2)
Quarter: 2014Q2

REPORT INFORMATION
  Report Type: Spontaneous
  Country: US (occurrence: US)
  Receive Date: 20140528
  Receipt Date: 20140611
  Transmission Date: 20141212
  Serious: No
  Sender: FDA-Public Use
  Company Number: US-009507513-1405USA013061

PATIENT
  Age: 72 Year
  Sex: Female

DRUGS (5)
  1. DULERA [Suspect]
     Indication: CHRONIC OBSTRUCTIVE PULMONARY DISEASE
     Dosage: 200/5 MCG, 2 PUFFS, TWICE DAILY
     Route: 055
     Dates: start: 20140517, end: 20140522
  2. ADVAIR [Concomitant]
  3. SPIRIVA [Concomitant]
  4. PROVENTIL [Concomitant]
     Route: 055
  5. COUMADIN [Concomitant]

REACTIONS (7)
  - Bronchitis chronic [Recovering/Resolving]
  - Oral candidiasis [Recovering/Resolving]
  - Dizziness [Recovering/Resolving]
  - Tremor [Recovering/Resolving]
  - Nervousness [Recovering/Resolving]
  - Swelling face [Recovering/Resolving]
  - Stomatitis [Unknown]
